FAERS Safety Report 21194309 (Version 1)
Quarter: 2022Q3

REPORT INFORMATION
  Report Type: Spontaneous
  Country: US (occurrence: None)
  Receive Date: 20220809
  Receipt Date: 20220809
  Transmission Date: 20221026
  Serious: Yes (Disabling)
  Sender: FDA-Public Use
  Company Number: None

PATIENT
  Age: 44 Year
  Sex: Male
  Weight: 74.25 kg

DRUGS (6)
  1. MEMANTINE [Suspect]
     Active Substance: MEMANTINE
     Indication: Drug therapy
     Dosage: OTHER QUANTITY : 60 TABLET(S);?FREQUENCY : TWICE A DAY;?
     Route: 048
  2. CLOZAPINE [Concomitant]
     Active Substance: CLOZAPINE
  3. LITHIUM [Concomitant]
     Active Substance: LITHIUM
  4. CLONAZEPAM [Concomitant]
     Active Substance: CLONAZEPAM
  5. CLONIDINE HYDROCHLORIDE [Concomitant]
     Active Substance: CLONIDINE HYDROCHLORIDE
  6. SENNA [Concomitant]
     Active Substance: SENNA LEAF\SENNOSIDES\SENNOSIDES A AND B

REACTIONS (6)
  - Memory impairment [None]
  - Cognitive disorder [None]
  - Abnormal behaviour [None]
  - Psychomotor hyperactivity [None]
  - Feeling jittery [None]
  - Disorganised speech [None]

NARRATIVE: CASE EVENT DATE: 20220809
